FAERS Safety Report 5725088-7 (Version None)
Quarter: 2008Q2

REPORT INFORMATION
  Report Type: 
  Country: None (occurrence: None)
  Receive Date: 20080501
  Receipt Date: 20080418
  Transmission Date: 20081010
  Serious: Yes (Other)
  Sender: FDA-Public Use
  Company Number: GB-AMGEN-US275763

PATIENT
  Age: 36 Year
  Sex: Male
  Weight: 119 kg

DRUGS (2)
  1. ENBREL [Suspect]
     Indication: ANKYLOSING SPONDYLITIS
     Route: 058
     Dates: start: 20060814, end: 20061205
  2. IBUPROFEN [Concomitant]
     Route: 048

REACTIONS (5)
  - ALANINE AMINOTRANSFERASE INCREASED [None]
  - AMNESIA [None]
  - ASPARTATE AMINOTRANSFERASE INCREASED [None]
  - CEREBRAL ISCHAEMIA [None]
  - LIVER FUNCTION TEST ABNORMAL [None]
